FAERS Safety Report 4374993-5 (Version None)
Quarter: 2004Q2

REPORT INFORMATION
  Report Type: 
  Country: None (occurrence: None)
  Receive Date: 20040604
  Receipt Date: 20040524
  Transmission Date: 20050107
  Serious: Yes (Death)
  Sender: FDA-Public Use
  Company Number: SEWYE779725MAY04

PATIENT
  Age: 19 Year
  Sex: Female

DRUGS (1)
  1. TRINORDIOL-28 (LEVONORGESTREL/ETHINYL ESTRADIOL/INERT, TABLET) [Suspect]
     Indication: CONTRACEPTION
     Dosage: 1 TABLET 1X PER 1 DAY ORAL
     Route: 048
     Dates: start: 20031115, end: 20040110

REACTIONS (1)
  - COMPLETED SUICIDE [None]
